FAERS Safety Report 17324786 (Version 1)
Quarter: 2020Q1

REPORT INFORMATION
  Report Type: Spontaneous
  Country: US (occurrence: US)
  Receive Date: 20200127
  Receipt Date: 20200127
  Transmission Date: 20200409
  Serious: Yes (Other)
  Sender: FDA-Public Use
  Company Number: US-MYLANLABS-2020M1006819

PATIENT
  Sex: Female

DRUGS (1)
  1. BUTORPHANOL TARTRATE NASAL SOLUTION, USP [Suspect]
     Active Substance: BUTORPHANOL TARTRATE
     Indication: MIGRAINE
     Dosage: UNK
     Route: 045

REACTIONS (4)
  - Breast cancer [Unknown]
  - Feeling abnormal [Unknown]
  - Product quality issue [Unknown]
  - Therapeutic product effect decreased [Unknown]
